FAERS Safety Report 9896529 (Version 2)
Quarter: 2014Q1

REPORT INFORMATION
  Report Type: Spontaneous
  Country: US (occurrence: US)
  Receive Date: 20140213
  Receipt Date: 20140213
  Transmission Date: 20141002
  Serious: No
  Sender: FDA-Public Use
  Company Number: US-BRISTOL-MYERS SQUIBB COMPANY-18855056

PATIENT
  Age: 60 Year
  Sex: Female
  Weight: 83.44 kg

DRUGS (16)
  1. ORENCIA FOR INJ [Suspect]
     Indication: RHEUMATOID ARTHRITIS
     Dosage: EVERY 2 WEEKS UNTIL AT A CERTAIN LEVEL AND THEN ONCE MONTH?IV ROUTE:SEP2012-OCT2012
     Route: 058
     Dates: start: 2012, end: 2012
  2. ABATACEPT SUBQ INJECTION 125MG/ML [Suspect]
     Indication: RHEUMATOID ARTHRITIS
     Dosage: 125MG/ML?PRES#2924554?LAST DOSE:10JUL2013
     Route: 058
     Dates: start: 201305
  3. FLONASE [Suspect]
  4. KEFLEX [Suspect]
     Dates: start: 201306
  5. METHOTREXATE [Concomitant]
     Dosage: NOW TAKING 0.8ML
     Route: 058
  6. PREDNISONE [Concomitant]
     Dosage: 5MG
  7. TOPICORT [Concomitant]
  8. FUROSEMIDE [Concomitant]
     Dosage: TAB
  9. SYNTHROID [Concomitant]
     Indication: HYPOTHYROIDISM
     Dosage: TAB?75MG/DAY
  10. NEXIUM [Concomitant]
     Indication: GASTROOESOPHAGEAL REFLUX DISEASE
     Dosage: CAP?40MG/2/DAY
  11. FLAVOXATE [Concomitant]
     Dosage: TAB
  12. FOLIC ACID [Concomitant]
     Dosage: CAP
  13. PREMARIN [Concomitant]
     Dosage: TAB
  14. IBUPROFEN [Concomitant]
     Dosage: CAP
  15. BENADRYL [Concomitant]
     Dosage: CAP
  16. ALBUTEROL [Concomitant]
     Indication: ASTHMA
     Dosage: 1DF:2 PUFFS

REACTIONS (7)
  - Weight decreased [Unknown]
  - Eczema [Unknown]
  - Hypersensitivity [Unknown]
  - Oral fungal infection [Unknown]
  - Fatigue [Unknown]
  - Nausea [Unknown]
  - Bladder spasm [Recovered/Resolved]
